FAERS Safety Report 10034197 (Version 2)
Quarter: 2014Q2

REPORT INFORMATION
  Report Type: Report from Study
  Country: CA (occurrence: CA)
  Receive Date: 20140325
  Receipt Date: 20140527
  Transmission Date: 20141212
  Serious: Yes (Other)
  Sender: FDA-Public Use
  Company Number: CA-ROCHE-1371161

PATIENT
  Age: 85 Year
  Sex: Female

DRUGS (2)
  1. RANIBIZUMAB [Suspect]
     Indication: PRODUCT USED FOR UNKNOWN INDICATION
     Route: 050
     Dates: start: 20091211
  2. RANIBIZUMAB [Suspect]
     Route: 050
     Dates: start: 20140121, end: 20140121

REACTIONS (1)
  - Vitreous haemorrhage [Unknown]
